FAERS Safety Report 8488367-9 (Version None)
Quarter: 2012Q3

REPORT INFORMATION
  Report Type: 
  Country: None (occurrence: None)
  Receive Date: 20120705
  Receipt Date: 20120624
  Transmission Date: 20120928
  Serious: Yes (Hospitalization, Other)
  Sender: FDA-Public Use
  Company Number: JP-ELI_LILLY_AND_COMPANY-JP201206007943

PATIENT
  Sex: Male

DRUGS (2)
  1. FORTEO [Suspect]
     Dosage: UNK
     Route: 058
     Dates: start: 20120201
  2. LOXONIN [Concomitant]
     Route: 048

REACTIONS (7)
  - MALAISE [None]
  - HIP SURGERY [None]
  - ANAEMIA [None]
  - PULMONARY OEDEMA [None]
  - CARDIAC FAILURE [None]
  - GASTRIC ULCER [None]
  - ASTHMA [None]
